FAERS Safety Report 4645247-4 (Version None)
Quarter: 2005Q1

REPORT INFORMATION
  Report Type: 
  Country: None (occurrence: None)
  Receive Date: 20050331
  Receipt Date: 20041201
  Transmission Date: 20050727
  Serious: No
  Sender: FDA-Public Use
  Company Number: 04P-163-0281792-00

PATIENT
  Age: 50 Year
  Sex: Female
  Weight: 104 kg

DRUGS (8)
  1. HUMIRA [Suspect]
     Indication: RHEUMATOID ARTHRITIS
     Dosage: 40 MG, 1 IN 1 WK, SUBCUTANEOUS
     Route: 058
     Dates: start: 20030101
  2. PREDNISONE [Concomitant]
  3. LEVOTHYROXINE SODIUM [Concomitant]
  4. CELECOXIB [Concomitant]
  5. ENAPRIL [Concomitant]
  6. FLUOXETINE HCL [Concomitant]
  7. HYDROCORTISONE [Concomitant]
  8. VICODIN [Concomitant]

REACTIONS (3)
  - CONDITION AGGRAVATED [None]
  - NASOPHARYNGITIS [None]
  - RHEUMATOID ARTHRITIS [None]
